FAERS Safety Report 5645182-9 (Version None)
Quarter: 2008Q1

REPORT INFORMATION
  Report Type: 
  Country: None (occurrence: None)
  Receive Date: 20080229
  Receipt Date: 20080220
  Transmission Date: 20080703
  Serious: Yes (Hospitalization)
  Sender: FDA-Public Use
  Company Number: US-JNJFOC-20080204930

PATIENT
  Sex: Female
  Weight: 68.04 kg

DRUGS (6)
  1. FENTANYL TRANSDERMAL SYSTEM [Suspect]
     Indication: IMPAIRED GASTRIC EMPTYING
     Route: 062
  2. ESTRACE [Concomitant]
     Route: 048
  3. LEXAPRO [Concomitant]
     Indication: DEPRESSION
     Route: 048
  4. TOPAMAX [Concomitant]
     Indication: MIGRAINE
     Route: 048
  5. ZANAFLEX [Concomitant]
     Indication: RESTLESS LEGS SYNDROME
     Dosage: AT BEDTIME
     Route: 048
  6. KLONOPIN [Concomitant]
     Indication: ANXIETY
     Route: 048

REACTIONS (3)
  - BLOOD POTASSIUM DECREASED [None]
  - DRUG SCREEN NEGATIVE [None]
  - MENTAL DISORDER [None]
